FAERS Safety Report 7583299-2 (Version None)
Quarter: 2011Q2

REPORT INFORMATION
  Report Type: 
  Country: None (occurrence: None)
  Receive Date: 20110627
  Receipt Date: 20110627
  Transmission Date: 20111010
  Serious: No
  Sender: FDA-Public Use
  Company Number: None

PATIENT
  Sex: Male
  Weight: 82.1011 kg

DRUGS (1)
  1. LIPITOR [Suspect]
     Indication: BLOOD CHOLESTEROL INCREASED
     Dosage: 1 DAILY PO
     Route: 048

REACTIONS (5)
  - COGNITIVE DISORDER [None]
  - JUDGEMENT IMPAIRED [None]
  - CONFUSIONAL STATE [None]
  - MENTAL IMPAIRMENT [None]
  - AMNESIA [None]
